FAERS Safety Report 8986175 (Version 1)
Quarter: 2012Q4

REPORT INFORMATION
  Report Type: Spontaneous
  Country: US (occurrence: None)
  Receive Date: 20121217
  Receipt Date: 20121217
  Transmission Date: 20130627
  Serious: Yes (Other)
  Sender: FDA-Public Use
  Company Number: POMP-1002236

PATIENT
  Age: 24 Year
  Sex: Female
  Weight: 59 kg

DRUGS (2)
  1. LUMIZYME [Suspect]
     Indication: POMPE^S DISEASE
     Route: 042
     Dates: start: 201102
  2. MULTIVITAMIN (VITAMIN NOS) [Concomitant]

REACTIONS (3)
  - Abortion spontaneous [None]
  - Pregnancy [None]
  - Exposure during pregnancy [None]
